APPROVED DRUG PRODUCT: CELLCEPT
Active Ingredient: MYCOPHENOLATE MOFETIL
Strength: 500MG
Dosage Form/Route: TABLET;ORAL
Application: N050723 | Product #001 | TE Code: AB
Applicant: ROCHE PALO ALTO LLC
Approved: Jun 19, 1997 | RLD: Yes | RS: Yes | Type: RX